FAERS Safety Report 6334135-3 (Version None)
Quarter: 2009Q3

REPORT INFORMATION
  Report Type: 
  Country: None (occurrence: None)
  Receive Date: 20090829
  Receipt Date: 20090717
  Transmission Date: 20100115
  Serious: No
  Sender: FDA-Public Use
  Company Number: US-ABBOTT-09P-163-0586450-00

PATIENT
  Sex: Male
  Weight: 99.88 kg

DRUGS (5)
  1. SIMCOR [Suspect]
     Indication: CARDIAC DISORDER
     Dosage: 500/20
     Dates: start: 20081224
  2. POTASSIUM MG SUPPLEMENT [Concomitant]
     Indication: DRUG USE FOR UNKNOWN INDICATION
  3. LOVAZA [Concomitant]
     Indication: DRUG USE FOR UNKNOWN INDICATION
  4. M.V.I. [Concomitant]
     Indication: DRUG USE FOR UNKNOWN INDICATION
  5. ASPIRIN [Concomitant]
     Indication: DRUG USE FOR UNKNOWN INDICATION

REACTIONS (9)
  - CHEST DISCOMFORT [None]
  - DELUSION [None]
  - DEPRESSION [None]
  - ERYTHEMA [None]
  - FEELING ABNORMAL [None]
  - FEELING HOT [None]
  - FLUSHING [None]
  - PRURITUS [None]
  - TACHYPHRENIA [None]
